FAERS Safety Report 22261909 (Version 6)
Quarter: 2025Q4

REPORT INFORMATION
  Report Type: Spontaneous
  Country: CA (occurrence: CA)
  Receive Date: 20230428
  Receipt Date: 20251226
  Transmission Date: 20260118
  Serious: Yes (Life-Threatening, Hospitalization, Other)
  Sender: AUROBINDO
  Company Number: CA-AUROBINDO-AUR-APL-2023-032606

PATIENT
  Age: 53 Year
  Sex: Female

DRUGS (12)
  1. QUETIAPINE [Suspect]
     Active Substance: QUETIAPINE
     Indication: Product used for unknown indication
     Dosage: 24 MILLIGRAM
     Route: 061
  2. QUETIAPINE [Suspect]
     Active Substance: QUETIAPINE
     Dosage: 50 MILLIGRAM
     Route: 061
  3. ALPRAZOLAM [Suspect]
     Active Substance: ALPRAZOLAM
     Indication: Product used for unknown indication
     Dosage: 1 MILLIGRAM
     Route: 061
  4. ALPRAZOLAM [Suspect]
     Active Substance: ALPRAZOLAM
     Dosage: 70 MILLIGRAM
     Route: 061
  5. CLONAZEPAM [Suspect]
     Active Substance: CLONAZEPAM
     Indication: Product used for unknown indication
     Dosage: 1 MILLIGRAM
     Route: 061
  6. CLONAZEPAM [Suspect]
     Active Substance: CLONAZEPAM
     Dosage: 48 MILLIGRAM
     Route: 061
  7. ACETAMINOPHEN\ALCOHOL\DEXTROAMPHETAMINE HYDROCHLORIDE\DOXYLAMINE SUCCI [Suspect]
     Active Substance: ACETAMINOPHEN\ALCOHOL\DEXTROAMPHETAMINE HYDROCHLORIDE\DOXYLAMINE SUCCINATE\EPHEDRINE SULFATE
     Indication: Product used for unknown indication
     Dosage: UNK
     Route: 061
  8. LORAZEPAM [Suspect]
     Active Substance: LORAZEPAM
     Indication: Product used for unknown indication
     Dosage: 0.5 MILLIGRAM
     Route: 061
  9. LORAZEPAM [Suspect]
     Active Substance: LORAZEPAM
     Dosage: 90.0 MILLIGRAM
     Route: 061
  10. ZOPICLONE [Suspect]
     Active Substance: ZOPICLONE
     Indication: Product used for unknown indication
     Dosage: 10 MILLIGRAM
     Route: 061
  11. ZOPICLONE [Suspect]
     Active Substance: ZOPICLONE
     Dosage: 7.5 MILLIGRAM
     Route: 061
  12. VICKS NYQUIL [Suspect]
     Active Substance: ACETAMINOPHEN\DEXTROMETHORPHAN HYDROBROMIDE\DOXYLAMINE SUCCINATE
     Indication: Product used for unknown indication
     Dosage: UNK
     Route: 061

REACTIONS (21)
  - Depressed level of consciousness [Recovered/Resolved]
  - Sinus tachycardia [Recovered/Resolved]
  - Toxicity to various agents [Recovered/Resolved]
  - Unresponsive to stimuli [Recovered/Resolved]
  - Intentional overdose [Recovered/Resolved]
  - Anion gap increased [Recovered/Resolved]
  - Blood pressure decreased [Recovered/Resolved]
  - Lactic acidosis [Recovered/Resolved]
  - Loss of consciousness [Recovered/Resolved]
  - Osmolar gap increased [Recovered/Resolved]
  - Respiratory rate decreased [Recovered/Resolved]
  - Suicide attempt [Recovered/Resolved]
  - Analgesic drug level increased [Recovered/Resolved]
  - Anticholinergic syndrome [Recovered/Resolved]
  - Blood creatinine increased [Recovered/Resolved]
  - Blood glucose increased [Recovered/Resolved]
  - Blood lactic acid increased [Recovered/Resolved]
  - Blood osmolarity increased [Recovered/Resolved]
  - Blood potassium decreased [Recovered/Resolved]
  - Coma scale abnormal [Recovered/Resolved]
  - PO2 increased [Recovered/Resolved]
